FAERS Safety Report 12959120 (Version 1)
Quarter: 2016Q4

REPORT INFORMATION
  Report Type: Spontaneous
  Country: US (occurrence: US)
  Receive Date: 20161121
  Receipt Date: 20161121
  Transmission Date: 20170207
  Serious: Yes (Other)
  Sender: FDA-Public Use
  Company Number: US-JNJFOC-20161008291

PATIENT
  Sex: Male
  Weight: 90 kg

DRUGS (17)
  1. LEXAPRO [Concomitant]
     Active Substance: ESCITALOPRAM OXALATE
  2. LOVAZA [Concomitant]
     Active Substance: OMEGA-3-ACID ETHYL ESTERS
  3. PRILOSEC [Concomitant]
     Active Substance: OMEPRAZOLE MAGNESIUM
  4. TURMERIC [Concomitant]
     Active Substance: TURMERIC
  5. ASPIRIN. [Concomitant]
     Active Substance: ASPIRIN
  6. FISH OIL [Concomitant]
     Active Substance: FISH OIL
  7. ZOVIRAX [Concomitant]
     Active Substance: ACYCLOVIR
  8. NIASPAN [Concomitant]
     Active Substance: NIACIN
  9. COMPAZINE [Concomitant]
     Active Substance: PROCHLORPERAZINE MALEATE
     Dosage: EVERY 6 HOURS PRN (AS NECESSARY)
  10. DECADRON [Concomitant]
     Active Substance: DEXAMETHASONE
     Dosage: ONCE A WEEK AND 1 TABLET DAILY FOR 3 DAYS EACH WEEK AFTER CHEMO
  11. PROAIR HFA [Concomitant]
     Active Substance: ALBUTEROL SULFATE
  12. DARZALEX [Suspect]
     Active Substance: DARATUMUMAB
     Indication: PLASMA CELL MYELOMA
     Route: 042
     Dates: start: 20160926
  13. POMALYST [Concomitant]
     Active Substance: POMALIDOMIDE
     Dosage: DAILY FOR 21 DAYS OF EACH MONTH
  14. ZOFRAN [Concomitant]
     Active Substance: ONDANSETRON HYDROCHLORIDE
     Dosage: Q 8 HOURS PRN (AS NECESSARY)
  15. XANAX [Concomitant]
     Active Substance: ALPRAZOLAM
  16. CRESTOR [Concomitant]
     Active Substance: ROSUVASTATIN CALCIUM
  17. NYSTATIN. [Concomitant]
     Active Substance: NYSTATIN

REACTIONS (1)
  - Neutrophil count decreased [Recovered/Resolved]
